FAERS Safety Report 9449340 (Version 1)
Quarter: 2013Q3

REPORT INFORMATION
  Report Type: Spontaneous
  Country: CN (occurrence: CN)
  Receive Date: 20130808
  Receipt Date: 20130808
  Transmission Date: 20140515
  Serious: Yes (Other)
  Sender: FDA-Public Use
  Company Number: CN-009507513-1308CHN000464

PATIENT
  Age: 64 Year
  Sex: Male
  Weight: 60 kg

DRUGS (1)
  1. TIENAM [Suspect]
     Indication: INFECTION
     Dosage: DAILY DOSE: 4G, QID
     Route: 041
     Dates: start: 20121007, end: 20121015

REACTIONS (1)
  - Epilepsy [Recovered/Resolved]
